FAERS Safety Report 7825390 (Version 2)
Quarter: 2012Q4

REPORT INFORMATION
  Report Type: 
  Country: US (occurrence: US)
  Receive Date: 20110224
  Receipt Date: 20121219
  Transmission Date: 20130627
  Serious: Yes (Hospitalization, Other)
  Sender: FDA-Public Use
  Company Number: US-ACTELION-A-US2011-45049

PATIENT
  Age: 30 Year
  Sex: Female

DRUGS (4)
  1. TRACLEER [Suspect]
     Indication: PULMONARY ARTERIAL HYPERTENSION
     Dosage: UNK
     Route: 048
     Dates: start: 20091119
  2. CIALIS [Concomitant]
  3. COUMADIN [Concomitant]
  4. SILDENAFIL [Concomitant]

REACTIONS (5)
  - Device related infection [Recovering/Resolving]
  - Loss of consciousness [Recovering/Resolving]
  - Deafness [Unknown]
  - Pyrexia [Recovering/Resolving]
  - Deafness unilateral [None]
